FAERS Safety Report 12408647 (Version 3)
Quarter: 2016Q2

REPORT INFORMATION
  Report Type: Report from Study
  Country: US (occurrence: US)
  Receive Date: 20160526
  Receipt Date: 20160621
  Transmission Date: 20160815
  Serious: Yes (Other)
  Sender: FDA-Public Use
  Company Number: US-009507513-1605GBR008965

PATIENT
  Age: 50 Year
  Sex: Male

DRUGS (3)
  1. REBETRON [Suspect]
     Active Substance: INTERFERON ALFA-2B\RIBAVIRIN
     Dosage: UNK
     Route: 048
     Dates: start: 200804, end: 2009
  2. REBETRON [Suspect]
     Active Substance: INTERFERON ALFA-2B\RIBAVIRIN
     Indication: HEPATITIS C
     Dosage: UNK
     Route: 048
     Dates: start: 20060119, end: 20061211
  3. REBETRON [Suspect]
     Active Substance: INTERFERON ALFA-2B\RIBAVIRIN
     Dosage: UNK
     Route: 048
     Dates: start: 200912, end: 201006

REACTIONS (8)
  - Alopecia [Recovered/Resolved]
  - Influenza like illness [Recovering/Resolving]
  - Anaemia [Recovered/Resolved]
  - Weight decreased [Recovering/Resolving]
  - Feeling abnormal [Recovering/Resolving]
  - Migraine [Recovering/Resolving]
  - Hepatitis C [Recovered/Resolved]
  - Lethargy [Recovering/Resolving]

NARRATIVE: CASE EVENT DATE: 2006
